FAERS Safety Report 14844604 (Version 2)
Quarter: 2018Q2

REPORT INFORMATION
  Report Type: Spontaneous
  Country: US (occurrence: US)
  Receive Date: 20180503
  Receipt Date: 20180529
  Transmission Date: 20180711
  Serious: No
  Sender: FDA-Public Use
  Company Number: US-GLAXOSMITHKLINE-US2018075860

PATIENT
  Age: 68 Year
  Sex: Female

DRUGS (4)
  1. FLOVENT DISKUS [Suspect]
     Active Substance: FLUTICASONE PROPIONATE
     Indication: BRONCHITIS
     Dosage: 2 PUFF(S), BID
     Route: 055
     Dates: start: 2014
  2. FLOVENT DISKUS [Suspect]
     Active Substance: FLUTICASONE PROPIONATE
     Indication: ASTHMA
  3. VENTOLIN HFA [Suspect]
     Active Substance: ALBUTEROL SULFATE
     Indication: BRONCHITIS
     Dosage: 2 PUFF(S), PRN
     Route: 055
     Dates: start: 2014
  4. VENTOLIN HFA [Suspect]
     Active Substance: ALBUTEROL SULFATE
     Indication: ASTHMA

REACTIONS (6)
  - Asthma [Not Recovered/Not Resolved]
  - Drug dose omission [Unknown]
  - Respiratory disorder [Not Recovered/Not Resolved]
  - Influenza [Recovered/Resolved]
  - Product availability issue [Unknown]
  - Expired product administered [Unknown]

NARRATIVE: CASE EVENT DATE: 201801
